FAERS Safety Report 20508652 (Version 2)
Quarter: 2022Q1

REPORT INFORMATION
  Report Type: Spontaneous
  Country: SG (occurrence: SG)
  Receive Date: 20220223
  Receipt Date: 20220316
  Transmission Date: 20220423
  Serious: Yes (Hospitalization, Other)
  Sender: FDA-Public Use
  Company Number: SG-BAYER-2022A024821

PATIENT
  Age: 34 Year
  Sex: Female

DRUGS (2)
  1. MIRENA [Suspect]
     Active Substance: LEVONORGESTREL
     Indication: Heavy menstrual bleeding
     Dosage: 20?G/DAY
     Route: 015
     Dates: start: 20220204
  2. MIRENA [Suspect]
     Active Substance: LEVONORGESTREL
     Indication: Premenstrual syndrome

REACTIONS (3)
  - Seizure [None]
  - Post procedural haemorrhage [Not Recovered/Not Resolved]
  - Fatigue [Not Recovered/Not Resolved]

NARRATIVE: CASE EVENT DATE: 20220204
